FAERS Safety Report 22895764 (Version 4)
Quarter: 2025Q3

REPORT INFORMATION
  Report Type: Spontaneous
  Country: CA (occurrence: CA)
  Receive Date: 20230901
  Receipt Date: 20250810
  Transmission Date: 20251021
  Serious: Yes (Other)
  Sender: ALEXION PHARMACEUTICALS
  Company Number: 2023A197504

PATIENT
  Age: 55 Year
  Sex: Female
  Weight: 74 kg

DRUGS (8)
  1. FULVESTRANT [Suspect]
     Active Substance: FULVESTRANT
     Indication: Product used for unknown indication
     Route: 065
  2. FULVESTRANT [Suspect]
     Active Substance: FULVESTRANT
  3. IBRANCE [Suspect]
     Active Substance: PALBOCICLIB
     Indication: Breast cancer metastatic
     Route: 065
  4. IBRANCE [Suspect]
     Active Substance: PALBOCICLIB
  5. LIORESAL [Concomitant]
     Active Substance: BACLOFEN
     Dosage: 5 MILLIGRAM, QD
  6. METHADONE [Concomitant]
     Active Substance: METHADONE HYDROCHLORIDE
  7. METOCLOPRAMIDE [Concomitant]
     Active Substance: METOCLOPRAMIDE
  8. MOTILIUM [Concomitant]
     Active Substance: DOMPERIDONE
     Dosage: 10 MILLIGRAM, TID

REACTIONS (11)
  - Aortic arteriosclerosis [Unknown]
  - Arthritis [Unknown]
  - Bone disorder [Unknown]
  - Insomnia [Unknown]
  - Mediastinal fibrosis [Unknown]
  - Osteosclerosis [Unknown]
  - Sinus disorder [Unknown]
  - Compression fracture [Unknown]
  - Thyroid calcification [Unknown]
  - Weight decreased [Unknown]
  - Weight increased [Unknown]
